FAERS Safety Report 9222673 (Version 1)
Quarter: 2013Q1

REPORT INFORMATION
  Report Type: Spontaneous
  Country: US (occurrence: US)
  Receive Date: 20120914
  Receipt Date: 20120914
  Transmission Date: 20140127
  Serious: Yes (Other)
  Sender: FDA-Public Use
  Company Number: JPI-P-017034

PATIENT
  Sex: 0

DRUGS (1)
  1. XYREM (500 MG/ML SOLUTION)(SODIUM OXYBATE) [Suspect]
     Indication: NARCOLEPSY
     Dosage: TWO DOSES OF 2.25 GM TAKEN NIGHTLY/AT BEDTIME.
     Route: 048
     Dates: start: 20110818, end: 20110825

REACTIONS (9)
  - Sleep apnoea syndrome [None]
  - Swelling face [None]
  - Dry mouth [None]
  - Hypoaesthesia [None]
  - Somnolence [None]
  - Dyspnoea [None]
  - Cough [None]
  - Dry throat [None]
  - Insomnia [None]
